FAERS Safety Report 19174546 (Version 2)
Quarter: 2021Q2

REPORT INFORMATION
  Report Type: Report from Study
  Country: US (occurrence: US)
  Receive Date: 20210423
  Receipt Date: 20210522
  Transmission Date: 20210717
  Serious: Yes (Other)
  Sender: FDA-Public Use
  Company Number: NVSC2021US085075

PATIENT
  Sex: Female

DRUGS (1)
  1. COSENTYX [Suspect]
     Active Substance: SECUKINUMAB
     Indication: PSORIATIC ARTHROPATHY
     Dosage: 150 MG, Q4W
     Route: 058
     Dates: start: 202103

REACTIONS (5)
  - Injection site bruising [Unknown]
  - Pain [Unknown]
  - Drug ineffective [Unknown]
  - Squamous cell carcinoma of skin [Unknown]
  - Injection site pain [Unknown]
